FAERS Safety Report 8616529-6 (Version None)
Quarter: 2012Q3

REPORT INFORMATION
  Report Type: 
  Country: None (occurrence: None)
  Receive Date: 20120823
  Receipt Date: 20120817
  Transmission Date: 20120928
  Serious: Yes (Hospitalization)
  Sender: FDA-Public Use
  Company Number: FR-BAXTER-2012BAX014720

PATIENT
  Sex: Male

DRUGS (28)
  1. MABTHERA [Suspect]
     Route: 042
     Dates: start: 20120611, end: 20120611
  2. NEXIUM [Suspect]
     Route: 048
  3. ETOPOSIDE [Concomitant]
     Route: 065
     Dates: start: 20120725
  4. CACIT D3 [Concomitant]
     Route: 065
  5. ASPIRIN [Concomitant]
     Route: 065
  6. CYCLOPHOSPHAMIDE [Suspect]
     Route: 042
     Dates: start: 20120626, end: 20120626
  7. DOXORUBICINE ACTAVIS [Suspect]
     Route: 042
     Dates: start: 20120626, end: 20120629
  8. MABTHERA [Suspect]
     Route: 042
     Dates: start: 20120626, end: 20120626
  9. CYCLOPHOSPHAMIDE [Suspect]
     Route: 042
     Dates: start: 20120710, end: 20120710
  10. VINCRISTINE [Suspect]
     Route: 042
     Dates: start: 20120608, end: 20120608
  11. CYCLOPHOSPHAMIDE [Suspect]
     Route: 042
     Dates: start: 20120608, end: 20120608
  12. MABTHERA [Suspect]
     Route: 042
     Dates: start: 20120628, end: 20120628
  13. ACETAMINOPHEN [Concomitant]
     Route: 065
  14. DOXORUBICINE ACTAVIS [Suspect]
     Route: 042
     Dates: start: 20120611, end: 20120611
  15. PREDNISONE TAB [Concomitant]
     Route: 065
  16. ACETAMINOPHEN W/ CODEINE [Concomitant]
     Route: 065
  17. DOXORUBICINE ACTAVIS [Suspect]
     Route: 042
     Dates: start: 20120710, end: 20120710
  18. MABTHERA [Suspect]
     Route: 042
     Dates: start: 20120705, end: 20120705
  19. ALENDRONATE SODIUM/CHOLECALCIFEROL [Concomitant]
     Route: 065
  20. PREVISCAN [Concomitant]
     Route: 065
  21. CYCLOPHOSPHAMIDE [Suspect]
     Route: 042
     Dates: start: 20120611, end: 20120611
  22. MABTHERA [Suspect]
     Route: 042
     Dates: start: 20120710, end: 20120710
  23. VINCRISTINE [Suspect]
     Route: 042
     Dates: start: 20120611, end: 20120611
  24. VINCRISTINE [Suspect]
     Route: 042
     Dates: start: 20120626, end: 20120626
  25. VINCRISTINE [Suspect]
     Route: 042
     Dates: start: 20120710, end: 20120710
  26. PREDNISOLONE [Suspect]
     Route: 048
     Dates: start: 20120608
  27. METHOTREXATE SODIUM [Concomitant]
     Route: 065
  28. POTASSIUM CHLORIDE [Concomitant]
     Route: 065

REACTIONS (2)
  - CONGESTIVE CARDIOMYOPATHY [None]
  - SYSTOLIC DYSFUNCTION [None]
